FAERS Safety Report 15077083 (Version 2)
Quarter: 2018Q3

REPORT INFORMATION
  Report Type: Spontaneous
  Country: US (occurrence: US)
  Receive Date: 20180627
  Receipt Date: 20180821
  Transmission Date: 20181010
  Serious: No
  Sender: FDA-Public Use
  Company Number: US-ASTRAZENECA-2018SE78983

PATIENT
  Age: 18600 Day
  Sex: Female
  Weight: 90.7 kg

DRUGS (2)
  1. BYDUREON BCISE [Suspect]
     Active Substance: EXENATIDE
     Indication: TYPE 2 DIABETES MELLITUS
     Route: 058
     Dates: start: 20180509
  2. BYDUREON [Suspect]
     Active Substance: EXENATIDE
     Indication: DIABETES MELLITUS
     Route: 058
     Dates: start: 2017

REACTIONS (4)
  - Injection site reaction [Unknown]
  - Device defective [Unknown]
  - Device leakage [Unknown]
  - Injection site injury [Unknown]

NARRATIVE: CASE EVENT DATE: 20180614
